FAERS Safety Report 18261325 (Version 2)
Quarter: 2020Q3

REPORT INFORMATION
  Report Type: Spontaneous
  Country: US (occurrence: US)
  Receive Date: 20200914
  Receipt Date: 20200926
  Transmission Date: 20201103
  Serious: No
  Sender: FDA-Public Use
  Company Number: US-009507513-2006USA008223

PATIENT
  Age: 70 Year
  Sex: Male

DRUGS (2)
  1. XTANDI [Suspect]
     Active Substance: ENZALUTAMIDE
     Indication: PROSTATE CANCER
     Dosage: 160 MILLIGRAM, ONCE DAILY
     Route: 048
     Dates: start: 2018
  2. ZOCOR [Suspect]
     Active Substance: SIMVASTATIN
     Indication: BLOOD CHOLESTEROL INCREASED
     Dosage: 20 MILLIGRAM, ONCE DAILY
     Route: 048
     Dates: start: 2017, end: 2020

REACTIONS (2)
  - Hypoacusis [Unknown]
  - Pruritus [Unknown]

NARRATIVE: CASE EVENT DATE: 20200401
